FAERS Safety Report 15349597 (Version 1)
Quarter: 2018Q3

REPORT INFORMATION
  Report Type: Spontaneous
  Country: IN (occurrence: IN)
  Receive Date: 20180904
  Receipt Date: 20180904
  Transmission Date: 20181010
  Serious: Yes (Hospitalization, Other)
  Sender: FDA-Public Use
  Company Number: IN-009507513-1806IND009955

PATIENT
  Age: 49 Year
  Sex: Male

DRUGS (1)
  1. KEYTRUDA [Suspect]
     Active Substance: PEMBROLIZUMAB
     Indication: THYMOMA
     Dosage: 2 CYCLES
     Dates: start: 2017

REACTIONS (24)
  - Dysstasia [Unknown]
  - Diaphragmatic paralysis [Unknown]
  - Condition aggravated [Unknown]
  - Hypotension [Unknown]
  - Cytomegalovirus infection [Unknown]
  - Psychotic disorder [Unknown]
  - Thymoma [Unknown]
  - Fatigue [Unknown]
  - Dyspnoea [Unknown]
  - Pulmonary embolism [Unknown]
  - Tachycardia [Unknown]
  - Lower respiratory tract infection [Unknown]
  - Decreased appetite [Unknown]
  - Adverse event [Unknown]
  - Coronary artery disease [Unknown]
  - Hypoxia [Unknown]
  - Sepsis [Unknown]
  - Myositis [Unknown]
  - Pneumonia [Unknown]
  - Retroperitoneal haematoma [Unknown]
  - Dependence on oxygen therapy [Unknown]
  - Aspartate aminotransferase increased [Unknown]
  - Intensive care unit acquired weakness [Unknown]
  - Abdominal pain upper [Unknown]

NARRATIVE: CASE EVENT DATE: 2018
